FAERS Safety Report 18905589 (Version 2)
Quarter: 2021Q4

REPORT INFORMATION
  Report Type: Spontaneous
  Country: US (occurrence: US)
  Receive Date: 20210217
  Receipt Date: 20211027
  Transmission Date: 20220304
  Serious: Yes (Other)
  Sender: FDA-Public Use
  Company Number: US-BIOMARINAP-US-2021-135025

PATIENT
  Age: 3 Year
  Sex: Female

DRUGS (2)
  1. ALDURAZYME [Suspect]
     Active Substance: LARONIDASE
     Indication: Mucopolysaccharidosis I
     Dosage: 8.70 MILLIGRAM, QW
     Route: 042
     Dates: start: 20180321
  2. ALDURAZYME [Suspect]
     Active Substance: LARONIDASE
     Dosage: 11.60 MILLIGRAM, QW
     Route: 042
     Dates: start: 20211018

REACTIONS (6)
  - Intellectual disability [Recovering/Resolving]
  - Sleep apnoea syndrome [Recovering/Resolving]
  - Speech disorder [Recovering/Resolving]
  - Insomnia [Recovering/Resolving]
  - Nasopharyngitis [Recovered/Resolved]
  - Illness [Recovered/Resolved]

NARRATIVE: CASE EVENT DATE: 20210101
